FAERS Safety Report 12712811 (Version 1)
Quarter: 2016Q3

REPORT INFORMATION
  Report Type: Report from Study
  Country: US (occurrence: US)
  Receive Date: 20160902
  Receipt Date: 20160902
  Transmission Date: 20161109
  Serious: Yes (Other)
  Sender: FDA-Public Use
  Company Number: US-JNJFOC-20160826568

PATIENT
  Age: 77 Year
  Sex: Female

DRUGS (15)
  1. SUCRALFATE. [Concomitant]
     Active Substance: SUCRALFATE
  2. CEFDINIR. [Concomitant]
     Active Substance: CEFDINIR
  3. LISINOPRIL. [Concomitant]
     Active Substance: LISINOPRIL
  4. SIMETHICONE (DIMETHICONE) [Concomitant]
     Active Substance: DIMETHICONE
  5. ASPIRIN. [Concomitant]
     Active Substance: ASPIRIN
  6. OMEPRAZOLE. [Concomitant]
     Active Substance: OMEPRAZOLE
  7. SYNTHROID [Concomitant]
     Active Substance: LEVOTHYROXINE SODIUM
  8. ORPHENADRINE [Concomitant]
     Active Substance: ORPHENADRINE
  9. ALUMINUM HYDROXIDE. [Concomitant]
     Active Substance: ALUMINUM HYDROXIDE
  10. PREDNISONE. [Concomitant]
     Active Substance: PREDNISONE
  11. DOCUSATE [Concomitant]
     Active Substance: DOCUSATE
  12. KEPPRA [Concomitant]
     Active Substance: LEVETIRACETAM
  13. IMBRUVICA [Suspect]
     Active Substance: IBRUTINIB
     Indication: CHRONIC LYMPHOCYTIC LEUKAEMIA
     Route: 048
     Dates: start: 20160814
  14. WARFARIN [Concomitant]
     Active Substance: WARFARIN
  15. NASACOR [Concomitant]

REACTIONS (4)
  - International normalised ratio increased [Unknown]
  - Ocular hyperaemia [Not Recovered/Not Resolved]
  - Haemoptysis [Not Recovered/Not Resolved]
  - Abdominal pain [Not Recovered/Not Resolved]

NARRATIVE: CASE EVENT DATE: 20160825
